FAERS Safety Report 7867083-8 (Version None)
Quarter: 2011Q4

REPORT INFORMATION
  Report Type: 
  Country: None (occurrence: None)
  Receive Date: 20111028
  Receipt Date: 20111025
  Transmission Date: 20120403
  Serious: Yes (Other)
  Sender: FDA-Public Use
  Company Number: US-BAYER-200943023NA

PATIENT
  Age: 81 Year
  Sex: Female
  Weight: 68.027 kg

DRUGS (22)
  1. DARVON [Concomitant]
  2. PRAVASTATIN [Concomitant]
  3. ANTIINFLAMMATORY/ANTIRHEUMATIC AGENTS IN COMB [Concomitant]
  4. PRAVACHOL [Concomitant]
  5. COSOPT [Concomitant]
  6. AMBIEN [Concomitant]
  7. NEXAVAR [Suspect]
     Dosage: 400 MG, BID, 3 DAYS OUT OF EACH WEEK
     Route: 048
  8. PLAVIX [Interacting]
     Dosage: 75 MG, UNK
  9. PROPRANOLOL [Concomitant]
  10. ACETYLSALICYLIC ACID SRT [Interacting]
     Indication: ANGIOPLASTY
     Dosage: 81 MG, QD
     Route: 048
     Dates: start: 20091102, end: 20100212
  11. NEXIUM [Concomitant]
     Dosage: EVERY EVENING
  12. LOTREL [Concomitant]
  13. DIOVAN [Concomitant]
  14. MULTI-VITAMIN [Concomitant]
  15. DARVOCET [Concomitant]
     Route: 048
  16. MILK THISTLE [Concomitant]
  17. NEXAVAR [Suspect]
     Indication: HEPATIC NEOPLASM MALIGNANT
     Dosage: HELD
     Route: 048
     Dates: start: 20091212, end: 20100212
  18. BLOOD PRESSURE MEDICATION (NOS) [Concomitant]
     Dosage: PATIENT ON 3 BLOOD PRESSURE MEDICATIONS
  19. NEBIVOLOL HCL [Concomitant]
     Dosage: UNK
  20. VITAMIN B-12 [Concomitant]
  21. NORFLEX [Concomitant]
  22. CALCIUM +VIT D [Concomitant]

REACTIONS (17)
  - EPISTAXIS [None]
  - DIARRHOEA [None]
  - BURNING SENSATION [None]
  - RASH MACULAR [None]
  - RASH [None]
  - BONE PAIN [None]
  - FATIGUE [None]
  - CONSTIPATION [None]
  - RASH ERYTHEMATOUS [None]
  - URTICARIA [None]
  - ASTHENIA [None]
  - ABDOMINAL DISCOMFORT [None]
  - ECZEMA [None]
  - HAEMOGLOBIN DECREASED [None]
  - BLOOD PRESSURE INCREASED [None]
  - HAEMATOCHEZIA [None]
  - HYPERNATRAEMIA [None]
